FAERS Safety Report 11641509 (Version 3)
Quarter: 2015Q4

REPORT INFORMATION
  Report Type: Spontaneous
  Country: IT (occurrence: IT)
  Receive Date: 20151019
  Receipt Date: 20151027
  Transmission Date: 20160304
  Serious: Yes (Hospitalization)
  Sender: FDA-Public Use
  Company Number: IT-PFIZER INC-2015348671

PATIENT
  Age: 69 Year
  Sex: Male

DRUGS (4)
  1. DOMPERIDONE [Suspect]
     Active Substance: DOMPERIDONE
     Dosage: 10 MG, SINGLE
     Route: 048
     Dates: start: 20151011, end: 20151011
  2. HALCION [Suspect]
     Active Substance: TRIAZOLAM
     Dosage: 1 MG, 1X/DAY
     Route: 048
     Dates: start: 20151011, end: 20151011
  3. LODOZ [Suspect]
     Active Substance: BISOPROLOL FUMARATE\HYDROCHLOROTHIAZIDE
     Dosage: 40 MG, SINGLE
     Route: 048
     Dates: start: 20151011, end: 20151011
  4. ZYLORIC [Suspect]
     Active Substance: ALLOPURINOL
     Dosage: 1200 MG, SINGLE
     Route: 048
     Dates: start: 20151011, end: 20151011

REACTIONS (3)
  - Suicide attempt [Recovering/Resolving]
  - Intentional product misuse [Recovering/Resolving]
  - Drug abuse [Recovering/Resolving]

NARRATIVE: CASE EVENT DATE: 20151011
